FAERS Safety Report 24248124 (Version 15)
Quarter: 2025Q2

REPORT INFORMATION
  Report Type: Report from Study
  Country: CA (occurrence: CA)
  Receive Date: 20240826
  Receipt Date: 20250519
  Transmission Date: 20250716
  Serious: Yes (Other)
  Sender: TAKEDA
  Company Number: CA-TAKEDA-2024TUS084331

PATIENT
  Sex: Male

DRUGS (6)
  1. VEDOLIZUMAB [Suspect]
     Active Substance: VEDOLIZUMAB
     Indication: Colitis ulcerative
  2. VEDOLIZUMAB [Suspect]
     Active Substance: VEDOLIZUMAB
  3. VEDOLIZUMAB [Suspect]
     Active Substance: VEDOLIZUMAB
  4. VEDOLIZUMAB [Suspect]
     Active Substance: VEDOLIZUMAB
     Dosage: 300 MILLIGRAM, Q4WEEKS
     Dates: start: 20241227
  5. VEDOLIZUMAB [Suspect]
     Active Substance: VEDOLIZUMAB
     Dosage: 300 MILLIGRAM, Q4WEEKS
  6. VEDOLIZUMAB [Suspect]
     Active Substance: VEDOLIZUMAB
     Dosage: 300 MILLIGRAM, Q4WEEKS
     Dates: end: 20250421

REACTIONS (26)
  - Haematochezia [Not Recovered/Not Resolved]
  - Rectal haemorrhage [Unknown]
  - COVID-19 [Recovered/Resolved]
  - Migraine [Unknown]
  - Neck pain [Not Recovered/Not Resolved]
  - Nasal congestion [Unknown]
  - Sinus congestion [Unknown]
  - Faeces soft [Not Recovered/Not Resolved]
  - Off label use [Unknown]
  - Defaecation urgency [Recovered/Resolved]
  - Insomnia [Unknown]
  - Sleep apnoea syndrome [Unknown]
  - Abdominal discomfort [Unknown]
  - Emotional distress [Unknown]
  - Abdominal pain [Unknown]
  - Malaise [Unknown]
  - Musculoskeletal stiffness [Unknown]
  - Dyspnoea [Unknown]
  - Chest discomfort [Unknown]
  - Abdominal distension [Unknown]
  - Dyspepsia [Unknown]
  - Back pain [Unknown]
  - Headache [Recovered/Resolved]
  - Arthralgia [Unknown]
  - Fatigue [Unknown]
  - Urine flow decreased [Unknown]

NARRATIVE: CASE EVENT DATE: 20240101
